FAERS Safety Report 23778016 (Version 3)
Quarter: 2024Q2

REPORT INFORMATION
  Report Type: Spontaneous
  Country: US (occurrence: US)
  Receive Date: 20240424
  Receipt Date: 20240520
  Transmission Date: 20240716
  Serious: No
  Sender: FDA-Public Use
  Company Number: US-PFIZER INC-202400084041

PATIENT
  Age: 10 Year
  Sex: Female
  Weight: 24.95 kg

DRUGS (1)
  1. GENOTROPIN [Suspect]
     Active Substance: SOMATROPIN
     Indication: Gestational age test abnormal
     Dosage: ONE TIME PER DAY AT 0.8 MILLIGRAMS

REACTIONS (3)
  - Drug dose omission by device [Unknown]
  - Device breakage [Unknown]
  - Product leakage [Unknown]
